FAERS Safety Report 20096076 (Version 1)
Quarter: 2021Q4

REPORT INFORMATION
  Report Type: Report from Study
  Country: CN (occurrence: CN)
  Receive Date: 20211122
  Receipt Date: 20211122
  Transmission Date: 20220303
  Serious: Yes (Death)
  Sender: FDA-Public Use
  Company Number: CN-ELI_LILLY_AND_COMPANY-CN202111008251

PATIENT

DRUGS (4)
  1. PEMETREXED [Suspect]
     Active Substance: PEMETREXED
     Indication: Central nervous system lymphoma
     Dosage: 600 MG/M2, GREATER THAN 0.5 H INFUSION ON DAY 1
  2. RITUXIMAB [Concomitant]
     Active Substance: RITUXIMAB
     Indication: Central nervous system lymphoma
     Dosage: 375 MG/M2, UNKNOWN
     Route: 065
  3. FOTEMUSTINE [Concomitant]
     Active Substance: FOTEMUSTINE
     Indication: Central nervous system lymphoma
     Dosage: 100 MG/M2, 1 H INFUSION ON DAY 1
  4. DEXAMETHASONE [Concomitant]
     Active Substance: DEXAMETHASONE
     Indication: Central nervous system lymphoma
     Dosage: 40 MG, 1 H INFUSION ON DAYS 1?5
     Route: 065

REACTIONS (1)
  - Toxicity to various agents [Fatal]
